FAERS Safety Report 9361059 (Version 2)
Quarter: 2013Q3

REPORT INFORMATION
  Report Type: Report from Study
  Country: SE (occurrence: SE)
  Receive Date: 20130621
  Receipt Date: 20130814
  Transmission Date: 20140515
  Serious: Yes (Other)
  Sender: FDA-Public Use
  Company Number: SE-ASTELLAS-2013EU005153

PATIENT
  Age: 71 Year
  Sex: Male
  Weight: 105 kg

DRUGS (3)
  1. ENZALUTAMIDE [Suspect]
     Indication: PROSTATE CANCER
     Dosage: 140 MG, UID/QD
     Route: 048
     Dates: start: 20130321, end: 20130405
  2. OXYCONTIN [Concomitant]
     Indication: PAIN
     Dosage: 10 MG, BID
     Route: 048
  3. OXYNORM [Concomitant]
     Indication: PAIN
     Dosage: 10 MG, PRN
     Route: 048

REACTIONS (2)
  - Liver function test abnormal [Not Recovered/Not Resolved]
  - Disease progression [Unknown]
